FAERS Safety Report 18601621 (Version 3)
Quarter: 2021Q1

REPORT INFORMATION
  Report Type: Report from Study
  Country: US (occurrence: US)
  Receive Date: 20201210
  Receipt Date: 20210213
  Transmission Date: 20210419
  Serious: Yes (Hospitalization, Other)
  Sender: FDA-Public Use
  Company Number: US-DECIPHERA PHARMACEUTICALS LLC-2019-US-000054

PATIENT
  Age: 76 Year
  Sex: Male
  Weight: 83 kg

DRUGS (36)
  1. DCC?2618 [Suspect]
     Active Substance: RIPRETINIB
     Dosage: 100 MILLIGRAM, BID
     Route: 048
     Dates: start: 20191106, end: 20191120
  2. DCC?2618 [Suspect]
     Active Substance: RIPRETINIB
     Dosage: 100 MILLIGRAM, QD (AM, ONCE IN THE MORNING)
     Route: 048
     Dates: start: 20191121, end: 20191121
  3. DCC?2618 [Suspect]
     Active Substance: RIPRETINIB
     Dosage: 100 MILLIGRAM, QD (AM, ONCE IN THE MORNING)
     Route: 048
     Dates: start: 20191218, end: 20191219
  4. DCC?2618 [Suspect]
     Active Substance: RIPRETINIB
     Dosage: 150 MILLIGRAM, BID (TWICE A DAY)
     Route: 048
     Dates: start: 20200506, end: 20200517
  5. DCC?2618 [Suspect]
     Active Substance: RIPRETINIB
     Dosage: 150 MILLIGRAM, PM  (ONCE IN THE AFTERNOON/ EVENING)
     Route: 048
     Dates: start: 20200408, end: 20200408
  6. CLOPIDOGREL [Concomitant]
     Active Substance: CLOPIDOGREL BISULFATE
     Indication: CORONARY ARTERY DISEASE
     Dosage: 75 MG, UNK
     Route: 048
     Dates: start: 2016
  7. DIPHENHYDRAMINE. [Concomitant]
     Active Substance: DIPHENHYDRAMINE
     Indication: PRURITUS
     Dosage: 12.5 MG, UNK
     Route: 048
     Dates: start: 20191017, end: 20200115
  8. OMEPRAZOLE. [Concomitant]
     Active Substance: OMEPRAZOLE
     Indication: GASTROOESOPHAGEAL REFLUX DISEASE
     Dosage: 40 MILLIGRAM
     Route: 048
     Dates: start: 2016, end: 20191022
  9. DCC?2618 [Suspect]
     Active Substance: RIPRETINIB
     Dosage: 100 MILLIGRAM, BID
     Route: 048
     Dates: start: 20191122, end: 20191216
  10. DCC?2618 [Suspect]
     Active Substance: RIPRETINIB
     Dosage: 100 MILLIGRAM, BID (TWICE A DAY)
     Route: 048
     Dates: start: 20191230, end: 20191231
  11. DCC?2618 [Suspect]
     Active Substance: RIPRETINIB
     Dosage: 100 MILLIGRAM, QD (AM, ONCE IN THE MORNING)
     Route: 048
     Dates: start: 20200212, end: 20200212
  12. DCC?2618 [Suspect]
     Active Substance: RIPRETINIB
     Dosage: 100 MILLIGRAM, QD (AM, ONCE IN THE MORNING)
     Route: 048
     Dates: start: 20191229, end: 20191229
  13. DCC?2618 [Suspect]
     Active Substance: RIPRETINIB
     Dosage: 100 MILLIGRAM, QD (AM, ONCE IN THE MORNING
     Route: 048
     Dates: start: 20200115, end: 20200115
  14. DCC?2618 [Suspect]
     Active Substance: RIPRETINIB
     Dosage: 100 MILLIGRAM, BID (TWICE A DAY)
     Route: 048
     Dates: start: 20200227, end: 20200407
  15. DCC?2618 [Suspect]
     Active Substance: RIPRETINIB
     Dosage: 150 MILLIGRAM, QD (ONCE IN THE AFTERNOON/EVENING)
     Route: 048
     Dates: start: 20200724, end: 20200724
  16. LOVASTATIN. [Concomitant]
     Active Substance: LOVASTATIN
     Indication: CORONARY ARTERY DISEASE
     Dosage: 20 MG, UNK
     Route: 048
     Dates: start: 2015, end: 20191022
  17. FAMOTIDINE. [Concomitant]
     Active Substance: FAMOTIDINE
     Indication: NAUSEA
     Dosage: 10 MG, UNK
     Route: 048
     Dates: start: 20190912, end: 20191022
  18. EZETIMIBE. [Concomitant]
     Active Substance: EZETIMIBE
     Indication: HYPERTENSION
     Dosage: 10 MILLIGRAM
     Route: 048
     Dates: start: 20191023
  19. DCC?2618 [Suspect]
     Active Substance: RIPRETINIB
     Dosage: 100 MILLIGRAM, BID (TWICE A DAY)
     Route: 048
     Dates: start: 20200116, end: 20200206
  20. DCC?2618 [Suspect]
     Active Substance: RIPRETINIB
     Dosage: 100 MILLIGRAM, QD (AM, ONCE IN THE MORNING)
     Route: 048
     Dates: start: 20200101, end: 20200101
  21. DCC?2618 [Suspect]
     Active Substance: RIPRETINIB
     Dosage: 150 MILLIGRAM, BID (TWICE A DAY)
     Route: 048
     Dates: start: 20200519, end: 20200722
  22. HYDROXYZINE [Concomitant]
     Active Substance: HYDROXYZINE HYDROCHLORIDE
     Indication: GASTROINTESTINAL DISORDER
     Dosage: 50 MG, UNK
     Route: 048
     Dates: start: 20190912
  23. PROCHLORPERAZINE. [Concomitant]
     Active Substance: PROCHLORPERAZINE
     Indication: NAUSEA
     Dosage: 30 MILLIGRAM
     Route: 048
     Dates: start: 20191023
  24. DCC?2618 [Suspect]
     Active Substance: RIPRETINIB
     Dosage: 100 MILLIGRAM, BID (TWICE A DAY)
     Route: 048
     Dates: start: 20200102, end: 20200114
  25. DCC?2618 [Suspect]
     Active Substance: RIPRETINIB
     Dosage: 150 MILLIGRAM, BID (TWICE A DAY)
     Route: 048
     Dates: start: 20200725, end: 20200807
  26. METOPROLOL TARTRATE. [Concomitant]
     Active Substance: METOPROLOL TARTRATE
     Indication: CORONARY ARTERY DISEASE
     Dosage: 75 MG, UNK
     Route: 048
  27. ONDANSETRON [Concomitant]
     Active Substance: ONDANSETRON
     Indication: NAUSEA
     Dosage: 8 MG, BID
     Route: 048
     Dates: start: 20190607, end: 20191001
  28. DCC?2618 [Suspect]
     Active Substance: RIPRETINIB
     Dosage: 100 MILLIGRAM, BID (TWICE A DAY)
     Route: 048
     Dates: start: 20191220, end: 20191228
  29. DCC?2618 [Suspect]
     Active Substance: RIPRETINIB
     Dosage: 100 MILLIGRAM, BID (TWICE A DAY)
     Route: 048
     Dates: start: 20200213, end: 20200225
  30. DCC?2618 [Suspect]
     Active Substance: RIPRETINIB
     Dosage: 150 MILLIGRAM, BID (TWICE A DAY)
     Route: 048
     Dates: start: 20200408, end: 20200505
  31. CBD OIL [Concomitant]
     Active Substance: CANNABIDIOL\HERBALS
     Indication: NAUSEA
     Dosage: 4 GTT, UNK
     Route: 048
     Dates: start: 20190306, end: 20191006
  32. DCC?2618 [Suspect]
     Active Substance: RIPRETINIB
     Indication: SYSTEMIC MASTOCYTOSIS
     Dosage: 150 MILLIGRAM, BID
     Route: 048
     Dates: start: 20191023, end: 20191028
  33. DCC?2618 [Suspect]
     Active Substance: RIPRETINIB
     Dosage: 100 MILLIGRAM, BID (TWICE A DAY)
     Route: 048
     Dates: start: 20200208, end: 20200211
  34. DCC?2618 [Suspect]
     Active Substance: RIPRETINIB
     Dosage: 100 MILLIGRAM, QD (AM, ONCE IN THE MORNING)
     Route: 048
     Dates: start: 20200226, end: 20200226
  35. DCC?2618 [Suspect]
     Active Substance: RIPRETINIB
     Dosage: 150 MILLIGRAM, AM (ONCE IN THE MORNING)
     Route: 048
     Dates: start: 20200723, end: 20200723
  36. MIRALAX [Concomitant]
     Active Substance: POLYETHYLENE GLYCOL 3350
     Indication: CONSTIPATION
     Dosage: 17 G, UNK
     Route: 048
     Dates: start: 20190904

REACTIONS (1)
  - Chest discomfort [Recovered/Resolved]

NARRATIVE: CASE EVENT DATE: 20191030
